FAERS Safety Report 11725937 (Version 3)
Quarter: 2015Q4

REPORT INFORMATION
  Report Type: Spontaneous
  Country: AT (occurrence: AT)
  Receive Date: 20151112
  Receipt Date: 20151222
  Transmission Date: 20160304
  Serious: Yes (Hospitalization, Other)
  Sender: FDA-Public Use
  Company Number: AT-ROCHE-1658949

PATIENT
  Age: 70 Year
  Sex: Male
  Weight: 70 kg

DRUGS (8)
  1. PANTOLOC [Concomitant]
     Active Substance: PANTOPRAZOLE SODIUM
     Route: 065
  2. CORTISONE [Concomitant]
     Active Substance: CORTISONE\HYDROCORTISONE
  3. APREDNISLON [Concomitant]
     Active Substance: PREDNISOLONE
     Route: 065
  4. BERODUAL [Concomitant]
     Active Substance: FENOTEROL HYDROBROMIDE\IPRATROPIUM BROMIDE
  5. SPIRIVA [Concomitant]
     Active Substance: TIOTROPIUM BROMIDE MONOHYDRATE
     Route: 065
  6. XOLAIR [Suspect]
     Active Substance: OMALIZUMAB
     Indication: ASTHMA
     Route: 058
     Dates: start: 20151104
  7. MONTELUKAST ACCORD [Concomitant]
     Active Substance: MONTELUKAST\MONTELUKAST SODIUM
     Route: 065
  8. SYMBICORT [Concomitant]
     Active Substance: BUDESONIDE\FORMOTEROL FUMARATE DIHYDRATE
     Dosage: 320/9 UG
     Route: 065

REACTIONS (15)
  - Muscle spasms [Recovered/Resolved]
  - Asthma [Unknown]
  - General physical health deterioration [Unknown]
  - Blood pressure increased [Unknown]
  - Aortic arteriosclerosis [Unknown]
  - Lymphocyte percentage decreased [Unknown]
  - Glomerular filtration rate decreased [Unknown]
  - Nephrolithiasis [Unknown]
  - Pulmonary mass [Unknown]
  - Blood creatinine increased [Unknown]
  - Neutrophil percentage increased [Unknown]
  - Emphysema [Unknown]
  - Seminoma [Unknown]
  - Protein urine present [Unknown]
  - Pectus excavatum [Unknown]

NARRATIVE: CASE EVENT DATE: 20151104
